FAERS Safety Report 8004737-7 (Version None)
Quarter: 2011Q4

REPORT INFORMATION
  Report Type: 
  Country: None (occurrence: None)
  Receive Date: 20111220
  Receipt Date: 20111206
  Transmission Date: 20120403
  Serious: Yes (Hospitalization, Other)
  Sender: FDA-Public Use
  Company Number: 1000024112

PATIENT
  Age: 66 Year
  Sex: Female
  Weight: 53.5 kg

DRUGS (10)
  1. TEMESTA (LORAZEPAM) (TABLETS) (LORAZEPAM) [Concomitant]
  2. CREON (PANCREATIN) (PANCREATIN) [Concomitant]
  3. PANTOZOL (PANTOPRAZOLE SODIUM SESQUIHYDRATE) (TABLETS) (PANTOPRAZOLE S [Concomitant]
  4. TRUXAL DRAGEES (CHLORPROTHIXENE HYDROCHLORIDE) (TABLETS) (CHLORPROTHIX [Concomitant]
  5. STILNOX (ZOLPIDEM TARTRATE) (TABLETS) (ZOLPIDEM TARTRATE) [Concomitant]
  6. REMERON [Concomitant]
  7. NOVOTHYRAL (NOVOTHYRAL) (TABLETS) (NOVOTHYRAL) [Concomitant]
  8. ESCITALOPRAM OXALATE [Suspect]
     Indication: BIPOLAR DISORDER
     Dosage: 15 MG (15 MG, 1 IN 1 D), ORAL
     Route: 048
     Dates: start: 20070101
  9. NOVALGIN (METAMIZOLE SODIUM MONOHYDRATE) (METAMIZOLE SODIUM MONOHYDRAT [Concomitant]
  10. DAFALGAN (PARACETAMOL) (TABLETS) (PARACETAMOL) [Concomitant]

REACTIONS (2)
  - PANCREATITIS ACUTE [None]
  - OFF LABEL USE [None]
